FAERS Safety Report 21748270 (Version 2)
Quarter: 2023Q1

REPORT INFORMATION
  Report Type: Report from Study
  Country: US (occurrence: US)
  Receive Date: 20221219
  Receipt Date: 20230113
  Transmission Date: 20230418
  Serious: Yes (Other)
  Sender: FDA-Public Use
  Company Number: US-GSK-US2022AMR175817

PATIENT

DRUGS (1)
  1. BELANTAMAB MAFODOTIN [Suspect]
     Active Substance: BELANTAMAB MAFODOTIN
     Indication: Product used for unknown indication
     Dosage: UNK

REACTIONS (4)
  - Visual acuity reduced [Recovering/Resolving]
  - Keratopathy [Recovering/Resolving]
  - Dry eye [Recovering/Resolving]
  - Foreign body in eye [Recovering/Resolving]

NARRATIVE: CASE EVENT DATE: 20221116
